FAERS Safety Report 5261706-8 (Version None)
Quarter: 2007Q1

REPORT INFORMATION
  Report Type: 
  Country: None (occurrence: None)
  Receive Date: 20061208
  Receipt Date: 20060519
  Transmission Date: 20070707
  Serious: Yes (Other)
  Sender: FDA-Public Use
  Company Number: USA-2006-0024271

PATIENT
  Age: 33 Year
  Sex: Male

DRUGS (5)
  1. OXYCONTIN [Suspect]
     Indication: BACK INJURY
     Dosage: 60 MG, BID
  2. MS CONTIN [Suspect]
     Indication: DRUG USE FOR UNKNOWN INDICATION
  3. DILAUDID [Suspect]
     Indication: DRUG USE FOR UNKNOWN INDICATION
  4. VICODIN [Suspect]
     Indication: DRUG USE FOR UNKNOWN INDICATION
  5. ACTIQ [Suspect]
     Indication: DRUG USE FOR UNKNOWN INDICATION

REACTIONS (5)
  - DRUG ABUSER [None]
  - DRUG DEPENDENCE [None]
  - INTENTIONAL DRUG MISUSE [None]
  - LETHARGY [None]
  - WEIGHT DECREASED [None]
